FAERS Safety Report 9972098 (Version 1)
Quarter: 2014Q1

REPORT INFORMATION
  Report Type: Report from Study
  Country: US (occurrence: US)
  Receive Date: 20140306
  Receipt Date: 20140306
  Transmission Date: 20141002
  Serious: No
  Sender: FDA-Public Use
  Company Number: US-ABBVIE-13P-163-1150196-00

PATIENT
  Age: 59 Year
  Sex: Female
  Weight: 86.26 kg

DRUGS (6)
  1. HUMIRA [Suspect]
     Indication: RHEUMATOID ARTHRITIS
     Route: 058
     Dates: start: 201307
  2. SYNTHROID [Concomitant]
     Indication: HYPOTHYROIDISM
  3. PREDNISONE [Concomitant]
     Indication: RHEUMATOID ARTHRITIS
  4. LISINOPRIL [Concomitant]
     Indication: HYPERTENSION
  5. FOLIC ACID [Concomitant]
     Indication: RHEUMATOID ARTHRITIS
  6. PERCOCET [Concomitant]
     Indication: ARTHRALGIA
     Dosage: PRN

REACTIONS (1)
  - Injection site pain [Not Recovered/Not Resolved]
